FAERS Safety Report 9991963 (Version 3)
Quarter: 2014Q1

REPORT INFORMATION
  Report Type: Spontaneous
  Country: DE (occurrence: DE)
  Receive Date: 20140310
  Receipt Date: 20140317
  Transmission Date: 20141002
  Serious: No
  Sender: FDA-Public Use
  Company Number: PHHY2014DE015972

PATIENT
  Sex: Male
  Weight: 77 kg

DRUGS (10)
  1. EXJADE [Suspect]
     Indication: IRON OVERLOAD
     Dosage: 500 MG, (1500 MG/DAY 3-0-0)
     Route: 048
     Dates: start: 201308
  2. CLOPIDOGREL [Concomitant]
     Dosage: 1 DF, QD (1-0-0)
  3. BISOPROLOL [Concomitant]
     Dosage: 0.5 DF, BID  (0.5-0-0.5)
  4. LOSARTAN [Concomitant]
     Dosage: 0.25 DF, QD (0.25-0-0)
  5. TORASEMIDE [Concomitant]
     Dosage: 0.25 DF, QD (0.25-0-0)
  6. SPIROBETA [Concomitant]
     Dosage: 0.5 DF, QD (0.5-0-0)
  7. ALLOPURINOL [Concomitant]
     Dosage: 0.5 DF, QD (0-0-0.5)
  8. PANTOZOL [Concomitant]
     Dosage: 1 DF, QD (1-0-0)
  9. PREDNISOLONE [Concomitant]
     Dosage: 1.5 DF, QD (1.5-0-0)
  10. MUCOFALK//PLANTAGO AFRA SEED HUSK [Concomitant]
     Dosage: 1 DF, UNK

REACTIONS (1)
  - Diarrhoea [Unknown]
